FAERS Safety Report 8451205-4 (Version None)
Quarter: 2012Q2

REPORT INFORMATION
  Report Type: 
  Country: None (occurrence: None)
  Receive Date: 20120323
  Receipt Date: 20111018
  Transmission Date: 20120825
  Serious: Yes (Hospitalization, Other)
  Sender: FDA-Public Use
  Company Number: 163-21880-11102101

PATIENT
  Age: 82 Year
  Sex: Male
  Weight: 79.8331 kg

DRUGS (14)
  1. LENALIDOMIDE [Suspect]
     Indication: MULTIPLE MYELOMA
     Dosage: 5 MG, DAILY X 21 DAYS, PO 5 MG, PO
     Route: 048
     Dates: start: 20110912, end: 20110926
  2. LENALIDOMIDE [Suspect]
     Indication: MULTIPLE MYELOMA
     Dosage: 5 MG, DAILY X 21 DAYS, PO 5 MG, PO
     Route: 048
     Dates: end: 20111017
  3. SPIRIVA [Concomitant]
  4. CITALOPRAM HYDROBROMIDE [Concomitant]
  5. FLOMAX [Concomitant]
  6. OMEPRAZOLE [Concomitant]
  7. BLOOD TRANSFUSION (BLOOD AND RELATED PRODUCTS) [Concomitant]
  8. ASPIRIN [Concomitant]
  9. HYDROCHLOROTHIAZIDE [Concomitant]
  10. ECONAZOLE (ECONAZOLE) [Concomitant]
  11. FERROUS GLUCONATE (FERROUS GLUCONATE) [Concomitant]
  12. ATENOLOL [Concomitant]
  13. PREDNISONE TAB [Concomitant]
  14. ZOMETA [Concomitant]

REACTIONS (3)
  - ATRIAL FIBRILLATION [None]
  - ANAEMIA [None]
  - PNEUMONIA [None]
